FAERS Safety Report 6472072-4 (Version None)
Quarter: 2009Q4

REPORT INFORMATION
  Report Type: 
  Country: None (occurrence: None)
  Receive Date: 20091203
  Receipt Date: 20080512
  Transmission Date: 20100525
  Serious: Yes (Hospitalization)
  Sender: FDA-Public Use
  Company Number: US-ELI_LILLY_AND_COMPANY-US200804003816

PATIENT
  Age: 89 Year
  Sex: Female

DRUGS (3)
  1. FORTEO [Suspect]
     Dosage: 20 UG, DAILY (1/D)
     Dates: start: 20071201
  2. ATACAND HCT [Concomitant]
     Indication: HYPERTENSION
  3. METOPROLOL [Concomitant]
     Indication: HYPERTENSION
     Dosage: 25 MG, DAILY (1/D)

REACTIONS (1)
  - CEREBROVASCULAR ACCIDENT [None]
